FAERS Safety Report 25610998 (Version 1)
Quarter: 2025Q3

REPORT INFORMATION
  Report Type: Spontaneous
  Country: US (occurrence: US)
  Receive Date: 20250728
  Receipt Date: 20250728
  Transmission Date: 20251020
  Serious: Yes (Congenital Anomaly, Other)
  Sender: AMGEN
  Company Number: US-AMGEN-USASP2025144399

PATIENT

DRUGS (1)
  1. PREDNISONE [Suspect]
     Active Substance: PREDNISONE
     Indication: Exposure during pregnancy
     Route: 064

REACTIONS (5)
  - Foetal malformation [Unknown]
  - Neonatal respiratory distress syndrome [Unknown]
  - Intensive care [Unknown]
  - Low birth weight baby [Unknown]
  - Foetal exposure during pregnancy [Unknown]
